FAERS Safety Report 11862836 (Version 1)
Quarter: 2015Q4

REPORT INFORMATION
  Report Type: Spontaneous
  Country: US (occurrence: None)
  Receive Date: 20151222
  Receipt Date: 20151222
  Transmission Date: 20160305
  Serious: Yes (Other)
  Sender: FDA-Public Use
  Company Number: None

PATIENT
  Age: 55 Year
  Sex: Female
  Weight: 88.91 kg

DRUGS (5)
  1. IRON [Concomitant]
     Active Substance: IRON
  2. ESTROGEN [Concomitant]
     Active Substance: ESTRONE\SUS SCROFA OVARY
  3. PROGESTERONE. [Concomitant]
     Active Substance: PROGESTERONE
  4. VITAMIN D [Concomitant]
     Active Substance: CHOLECALCIFEROL
  5. VIVELLE-DOT [Suspect]
     Active Substance: ESTRADIOL
     Indication: MENOPAUSAL SYMPTOMS
     Route: 061

REACTIONS (6)
  - Insomnia [None]
  - Mood swings [None]
  - Night sweats [None]
  - Migraine [None]
  - Drug ineffective [None]
  - Thinking abnormal [None]

NARRATIVE: CASE EVENT DATE: 20151109
